FAERS Safety Report 15107933 (Version 1)
Quarter: 2018Q3

REPORT INFORMATION
  Report Type: Spontaneous
  Country: US (occurrence: US)
  Receive Date: 20180704
  Receipt Date: 20180704
  Transmission Date: 20181010
  Serious: No
  Sender: FDA-Public Use
  Company Number: US-009507513-1807USA000970

PATIENT
  Sex: Female
  Weight: 40.36 kg

DRUGS (1)
  1. NEXPLANON [Suspect]
     Active Substance: ETONOGESTREL
     Dosage: 1 ROD PER  3 YEARS
     Route: 059
     Dates: start: 2016

REACTIONS (1)
  - Complication associated with device [Unknown]
